FAERS Safety Report 5660926-8 (Version None)
Quarter: 2008Q1

REPORT INFORMATION
  Report Type: 
  Country: None (occurrence: None)
  Receive Date: 20080204
  Receipt Date: 20071102
  Transmission Date: 20080703
  Serious: Yes (Other)
  Sender: FDA-Public Use
  Company Number: PHEH2007US14484

PATIENT
  Age: 78 Year
  Sex: Male

DRUGS (1)
  1. EXELON [Suspect]
     Dosage: 4 6 MG, QD, TRANSDERMAL
     Route: 062

REACTIONS (4)
  - CONFUSIONAL STATE [None]
  - DELUSION [None]
  - HALLUCINATION [None]
  - NAUSEA [None]
